FAERS Safety Report 10346023 (Version 2)
Quarter: 2014Q3

REPORT INFORMATION
  Report Type: Spontaneous
  Country: US (occurrence: US)
  Receive Date: 20140728
  Receipt Date: 20140730
  Transmission Date: 20150326
  Serious: Yes (Hospitalization)
  Sender: FDA-Public Use
  Company Number: US-B.I. PHARMACEUTICALS,INC./RIDGEFIELD-2014-BI-33544BP

PATIENT
  Age: 73 Year
  Sex: Male
  Weight: 66 kg

DRUGS (4)
  1. LOSARTAN [Concomitant]
     Active Substance: LOSARTAN
     Indication: HYPERTENSION
     Dosage: STRENGTH: 50 MG /12.5 MG; DAILY DOSE: 50 MG /12.5 MG
     Route: 048
     Dates: start: 2010
  2. CARBIDOPA. [Concomitant]
     Active Substance: CARBIDOPA
     Indication: PARKINSON^S DISEASE
     Dosage: STRENGTH: 50 MG / 200 MG; DAILY DOSE: 250 MG / 1000 MG
     Route: 048
     Dates: start: 2012
  3. SPIRIVA [Suspect]
     Active Substance: TIOTROPIUM BROMIDE MONOHYDRATE
     Indication: CHRONIC OBSTRUCTIVE PULMONARY DISEASE
     Dosage: 18 MCG
     Route: 055
     Dates: start: 2013
  4. PROTONIX [Concomitant]
     Active Substance: PANTOPRAZOLE SODIUM
     Indication: GASTROOESOPHAGEAL REFLUX DISEASE
     Dosage: 40 MG
     Route: 048
     Dates: start: 2009

REACTIONS (6)
  - Hand fracture [Not Recovered/Not Resolved]
  - Product quality issue [Not Recovered/Not Resolved]
  - Concussion [Not Recovered/Not Resolved]
  - Wrist fracture [Not Recovered/Not Resolved]
  - Fall [Recovered/Resolved]
  - Subdural haematoma [Not Recovered/Not Resolved]

NARRATIVE: CASE EVENT DATE: 201405
